FAERS Safety Report 8465024-6 (Version None)
Quarter: 2012Q2

REPORT INFORMATION
  Report Type: 
  Country: None (occurrence: None)
  Receive Date: 20120626
  Receipt Date: 20120618
  Transmission Date: 20120825
  Serious: Yes (Hospitalization)
  Sender: FDA-Public Use
  Company Number: US-BAYER-2011-027520

PATIENT
  Age: 28 Year
  Sex: Female
  Weight: 86.168 kg

DRUGS (7)
  1. MIRENA [Concomitant]
     Dosage: UNK
     Dates: start: 20080529
  2. YASMIN [Suspect]
     Dosage: UNK
     Route: 048
     Dates: start: 20000101, end: 20020101
  3. YASMIN [Suspect]
     Dosage: UNK
     Dates: start: 20070101, end: 20080101
  4. YAZ [Suspect]
     Dosage: UNK
     Dates: start: 20070101, end: 20080101
  5. YAZ [Suspect]
     Dosage: UNK
     Route: 048
     Dates: start: 20000101, end: 20020101
  6. ZOLOFT [Concomitant]
     Indication: ANXIETY
  7. ZOLOFT [Concomitant]
     Indication: DEPRESSION
     Dosage: QD
     Dates: start: 20081101

REACTIONS (8)
  - GENERAL PHYSICAL HEALTH DETERIORATION [None]
  - EMOTIONAL DISTRESS [None]
  - CHOLECYSTECTOMY [None]
  - CHOLECYSTITIS CHRONIC [None]
  - INJURY [None]
  - PAIN [None]
  - ANXIETY [None]
  - ANHEDONIA [None]
